FAERS Safety Report 19161075 (Version 1)
Quarter: 2021Q2

REPORT INFORMATION
  Report Type: Spontaneous
  Country: IR (occurrence: IR)
  Receive Date: 20210421
  Receipt Date: 20210421
  Transmission Date: 20210717
  Serious: Yes (Hospitalization, Other)
  Sender: FDA-Public Use
  Company Number: IR-LUPIN PHARMACEUTICALS INC.-2021-04938

PATIENT
  Age: 35 Year
  Sex: Male

DRUGS (14)
  1. CLINDAMYCIN. [Suspect]
     Active Substance: CLINDAMYCIN
     Indication: CEREBRAL TOXOPLASMOSIS
     Dosage: 900 MILLIGRAM, TID
     Route: 042
  2. METHADONE [Concomitant]
     Active Substance: METHADONE HYDROCHLORIDE
     Indication: DRUG WITHDRAWAL MAINTENANCE THERAPY
     Dosage: UNK
     Route: 065
  3. EMTRICITABINE/TENOFOVIR DISOPROXIL FUMARATE [Concomitant]
     Active Substance: EMTRICITABINE\TENOFOVIR DISOPROXIL FUMARATE
     Indication: HIV INFECTION
     Dosage: UNK
     Route: 065
  4. DEXAMETHASONE. [Concomitant]
     Active Substance: DEXAMETHASONE
     Indication: BRAIN OEDEMA
     Dosage: UNK
     Route: 065
  5. SULFAMETHOXAZOLE AND TRIMETHOPRIM [Suspect]
     Active Substance: SULFAMETHOXAZOLE\TRIMETHOPRIM
     Indication: DRUG THERAPY
  6. FLUCONAZOLE. [Concomitant]
     Active Substance: FLUCONAZOLE
     Indication: OROPHARYNGEAL CANDIDIASIS
     Dosage: 100 MILLIGRAM, QD
     Route: 048
  7. EFAVIRENZ. [Concomitant]
     Active Substance: EFAVIRENZ
     Indication: HIV INFECTION
     Dosage: UNK
     Route: 065
  8. AZITHROMYCIN ANHYDROUS. [Suspect]
     Active Substance: AZITHROMYCIN ANHYDROUS
     Indication: CEREBRAL TOXOPLASMOSIS
     Dosage: 1000 MILLIGRAM, QD
     Route: 065
  9. PYRAZINAMIDE. [Suspect]
     Active Substance: PYRAZINAMIDE
     Indication: PULMONARY TUBERCULOSIS
     Dosage: UNK
     Route: 065
  10. ISONIAZID. [Suspect]
     Active Substance: ISONIAZID
     Indication: PULMONARY TUBERCULOSIS
     Dosage: UNK
     Route: 065
  11. ETHAMBUTOL [Suspect]
     Active Substance: ETHAMBUTOL HYDROCHLORIDE
     Indication: PULMONARY TUBERCULOSIS
     Dosage: UNK
     Route: 065
  12. DEXAMETHASONE. [Concomitant]
     Active Substance: DEXAMETHASONE
     Indication: CEREBRAL MASS EFFECT
  13. SULFAMETHOXAZOLE AND TRIMETHOPRIM [Suspect]
     Active Substance: SULFAMETHOXAZOLE\TRIMETHOPRIM
     Indication: CEREBRAL TOXOPLASMOSIS
     Dosage: 15 MILLIGRAM/KILOGRAM, QD,DIVIDED IN THREE EQUAL DOSES
     Route: 042
  14. RIFAMPIN. [Suspect]
     Active Substance: RIFAMPIN
     Indication: PULMONARY TUBERCULOSIS
     Dosage: UNK
     Route: 065

REACTIONS (2)
  - Thrombocytopenia [Recovered/Resolved]
  - Off label use [Unknown]
